FAERS Safety Report 9361887 (Version 1)
Quarter: 2013Q2

REPORT INFORMATION
  Report Type: Report from Study
  Country: DE (occurrence: DE)
  Receive Date: 20130621
  Receipt Date: 20130621
  Transmission Date: 20140414
  Serious: Yes (Hospitalization)
  Sender: FDA-Public Use
  Company Number: DE-ABBOTT-13P-062-1104268-00

PATIENT
  Age: 60 Year
  Sex: Female
  Weight: 82 kg

DRUGS (9)
  1. HUMIRA [Suspect]
     Indication: RHEUMATOID ARTHRITIS
     Route: 058
     Dates: start: 20120521, end: 20130130
  2. METHOTREXATE [Suspect]
     Indication: RHEUMATOID ARTHRITIS
     Dates: start: 2008, end: 20130130
  3. PREDNISOLONE [Concomitant]
     Indication: RHEUMATOID ARTHRITIS
     Dates: start: 2008
  4. CALCIUM, COLECALCIFEROL [Concomitant]
     Indication: OSTEOPOROSIS
     Dosage: 1000 MG/800 UNITS
  5. IBUPROFEN [Concomitant]
     Indication: OSTEOARTHRITIS
  6. IBUPROFEN [Concomitant]
     Indication: SPINAL OSTEOARTHRITIS
  7. ZALDIAR [Concomitant]
     Indication: OSTEOARTHRITIS
  8. ZALDIAR [Concomitant]
     Indication: SPINAL OSTEOARTHRITIS
  9. SPIRIVA [Concomitant]
     Indication: ASTHMA

REACTIONS (4)
  - Pulmonary oedema [Recovered/Resolved]
  - Pneumonia [Recovered/Resolved]
  - Tachycardia [Recovered/Resolved]
  - Knee arthroplasty [Unknown]
